FAERS Safety Report 14648099 (Version 2)
Quarter: 2019Q1

REPORT INFORMATION
  Report Type: Report from Study
  Country: US (occurrence: US)
  Receive Date: 20180316
  Receipt Date: 20190211
  Transmission Date: 20190417
  Serious: Yes (Hospitalization, Other)
  Sender: FDA-Public Use
  Company Number: US-JNJFOC-20180320446

PATIENT
  Sex: Female

DRUGS (5)
  1. IMBRUVICA [Suspect]
     Active Substance: IBRUTINIB
     Indication: HYPOGAMMAGLOBULINAEMIA
     Route: 048
     Dates: start: 20161127
  2. IMBRUVICA [Suspect]
     Active Substance: IBRUTINIB
     Indication: HYPOGAMMAGLOBULINAEMIA
     Dosage: 420 MG, QD
     Route: 048
     Dates: start: 20180830
  3. LEVOFLOXACIN. [Concomitant]
     Active Substance: LEVOFLOXACIN
  4. IMBRUVICA [Suspect]
     Active Substance: IBRUTINIB
     Indication: HYPOGAMMAGLOBULINAEMIA
     Dosage: 420 MG, QD
     Route: 048
     Dates: start: 20180418
  5. IMBRUVICA [Suspect]
     Active Substance: IBRUTINIB
     Indication: HYPOGAMMAGLOBULINAEMIA
     Route: 048
     Dates: start: 20161119

REACTIONS (3)
  - Eye injury [Recovering/Resolving]
  - Blindness [Unknown]
  - Fall [Unknown]
